FAERS Safety Report 14553963 (Version 1)
Quarter: 2018Q1

REPORT INFORMATION
  Report Type: Spontaneous
  Country: IE (occurrence: IE)
  Receive Date: 20180220
  Receipt Date: 20180220
  Transmission Date: 20180509
  Serious: Yes (Hospitalization)
  Sender: FDA-Public Use
  Company Number: IE-JNJFOC-20180225900

PATIENT
  Age: 40 Year
  Sex: Male

DRUGS (1)
  1. XARELTO [Suspect]
     Active Substance: RIVAROXABAN
     Indication: ANTICOAGULANT THERAPY
     Route: 048
     Dates: start: 20180113

REACTIONS (5)
  - Feeling abnormal [Unknown]
  - Chest pain [Not Recovered/Not Resolved]
  - Vasculitis [Not Recovered/Not Resolved]
  - Peripheral swelling [Unknown]
  - Muscle spasms [Not Recovered/Not Resolved]
